FAERS Safety Report 5901889-7 (Version None)
Quarter: 2008Q3

REPORT INFORMATION
  Report Type: 
  Country: None (occurrence: None)
  Receive Date: 20080929
  Receipt Date: 20080918
  Transmission Date: 20090109
  Serious: Yes (Other)
  Sender: FDA-Public Use
  Company Number: PHHY2008JP22185

PATIENT
  Age: 44 Year
  Sex: Male

DRUGS (2)
  1. VOLTAREN [Suspect]
     Route: 048
  2. FAMOTIDINE [Concomitant]

REACTIONS (1)
  - RHABDOMYOLYSIS [None]
